FAERS Safety Report 6050042-8 (Version None)
Quarter: 2009Q1

REPORT INFORMATION
  Report Type: 
  Country: None (occurrence: None)
  Receive Date: 20090121
  Receipt Date: 20090113
  Transmission Date: 20090719
  Serious: Yes (Other)
  Sender: FDA-Public Use
  Company Number: 1000003471

PATIENT
  Sex: Male

DRUGS (2)
  1. LEXAPRO [Suspect]
     Indication: ANXIETY
     Dosage: 10 MG (10 MG, 1 IN 1 D), TRANSPLACENTAL; 20 MG (20 MG, 1 IN 1 D),TRANSPLACENTAL
     Route: 064
     Dates: start: 20080301, end: 20080101
  2. LEXAPRO [Suspect]
     Indication: ANXIETY
     Dosage: 10 MG (10 MG, 1 IN 1 D), TRANSPLACENTAL; 20 MG (20 MG, 1 IN 1 D),TRANSPLACENTAL
     Route: 064
     Dates: start: 20080101, end: 20080501

REACTIONS (2)
  - FOETAL HEART RATE DECREASED [None]
  - MATERNAL DRUGS AFFECTING FOETUS [None]
